FAERS Safety Report 5285310-0 (Version None)
Quarter: 2007Q2

REPORT INFORMATION
  Report Type: 
  Country: None (occurrence: None)
  Receive Date: 20070403
  Receipt Date: 20070326
  Transmission Date: 20071010
  Serious: Yes (Death)
  Sender: FDA-Public Use
  Company Number: US-BOEHRINGER INGELHEIM GMBH, GERMANY-2007-DE-01803GD

PATIENT
  Age: 35 Year
  Sex: Female

DRUGS (6)
  1. ACETAMINOPHEN [Suspect]
  2. IBUPROFEN [Suspect]
  3. NAPROXEN [Suspect]
  4. CITALOPRAM HYDROBROMIDE [Suspect]
  5. QUETIAPINE FUMARATE [Suspect]
  6. TOPIRAMATE [Suspect]

REACTIONS (3)
  - DRUG ABUSER [None]
  - DRUG TOXICITY [None]
  - SUICIDE ATTEMPT [None]
